FAERS Safety Report 12635618 (Version 1)
Quarter: 2016Q3

REPORT INFORMATION
  Report Type: Spontaneous
  Country: US (occurrence: US)
  Receive Date: 20160809
  Receipt Date: 20160809
  Transmission Date: 20161109
  Serious: No
  Sender: FDA-Public Use
  Company Number: US-TARO-2015TAR01189

PATIENT
  Age: 85 Year
  Sex: Male
  Weight: 89.8 kg

DRUGS (3)
  1. TERBINAFINE HCL CREAM 1% (MALE) [Suspect]
     Active Substance: TERBINAFINE HYDROCHLORIDE
     Indication: TINEA CRURIS
     Dosage: UNK UNK, ONCE
     Route: 048
     Dates: start: 20151229, end: 20151229
  2. TERBINAFINE HCL CREAM 1% (MALE) [Suspect]
     Active Substance: TERBINAFINE HYDROCHLORIDE
     Dosage: UNK, ONCE
     Route: 061
     Dates: start: 20151229, end: 20151229
  3. UNSPECIFIED MEDICATIONS [Concomitant]
     Active Substance: UNSPECIFIED INGREDIENT

REACTIONS (3)
  - Accidental exposure to product [Recovered/Resolved]
  - Sleep disorder [Recovered/Resolved]
  - Dry mouth [Recovered/Resolved]

NARRATIVE: CASE EVENT DATE: 20151229
